FAERS Safety Report 11649487 (Version 2)
Quarter: 2015Q4

REPORT INFORMATION
  Report Type: Spontaneous
  Country: JP (occurrence: JP)
  Receive Date: 20151021
  Receipt Date: 20151027
  Transmission Date: 20160304
  Serious: Yes (Hospitalization, Disabling, Other)
  Sender: FDA-Public Use
  Company Number: JP-GLAXOSMITHKLINE-JP2015JPN138291

PATIENT
  Age: 59 Year
  Sex: Female
  Weight: 46 kg

DRUGS (10)
  1. ALFAROL [Concomitant]
     Active Substance: ALFACALCIDOL
  2. CALTAN [Concomitant]
     Active Substance: CALCIUM CARBONATE
  3. HALCION [Concomitant]
     Active Substance: TRIAZOLAM
  4. OLMETEC [Concomitant]
     Active Substance: OLMESARTAN MEDOXOMIL
  5. VALTREX [Suspect]
     Active Substance: VALACYCLOVIR HYDROCHLORIDE
     Indication: HERPES ZOSTER
     Dosage: 1000 MG, TID
     Route: 048
     Dates: start: 20150925, end: 20150926
  6. WARFARIN [Concomitant]
     Active Substance: WARFARIN
     Indication: DIALYSIS
     Dosage: 2 MG, QD
  7. AMLODIPINE [Concomitant]
     Active Substance: AMLODIPINE BESYLATE
  8. NORVASC [Concomitant]
     Active Substance: AMLODIPINE BESYLATE
     Dosage: 10 MG, UNK
  9. DEPAS [Concomitant]
     Active Substance: ETIZOLAM
  10. CONIEL [Concomitant]
     Active Substance: BENIDIPINE HYDROCHLORIDE
     Dosage: 4 MG, BID

REACTIONS (11)
  - Nausea [Unknown]
  - Seizure [Unknown]
  - Depressed level of consciousness [Recovered/Resolved]
  - Dizziness [Unknown]
  - Overdose [Unknown]
  - Altered state of consciousness [Recovered/Resolved]
  - Disorientation [Unknown]
  - Somnolence [Unknown]
  - Loss of consciousness [Recovered/Resolved]
  - Toxic encephalopathy [Recovered/Resolved]
  - Disorientation [Recovered/Resolved]

NARRATIVE: CASE EVENT DATE: 20150926
